FAERS Safety Report 16573777 (Version 1)
Quarter: 2019Q3

REPORT INFORMATION
  Report Type: Spontaneous
  Country: US (occurrence: US)
  Receive Date: 20190715
  Receipt Date: 20190715
  Transmission Date: 20191004
  Serious: Yes (Other)
  Sender: FDA-Public Use
  Company Number: US-MYLANLABS-2019M1066420

PATIENT
  Age: 56 Year
  Sex: Male

DRUGS (2)
  1. CISPLATIN. [Suspect]
     Active Substance: CISPLATIN
     Indication: SMALL CELL CARCINOMA
     Dosage: 4 CYCLES TOTALLY
     Route: 042
  2. ETOPOSIDE. [Concomitant]
     Active Substance: ETOPOSIDE
     Indication: SMALL CELL CARCINOMA
     Route: 065

REACTIONS (7)
  - Subretinal fibrosis [Recovered/Resolved]
  - Serous retinal detachment [Recovering/Resolving]
  - Maculopathy [Recovered/Resolved]
  - Retinopathy [Recovered/Resolved]
  - Blindness [Not Recovered/Not Resolved]
  - Cataract nuclear [Recovered/Resolved]
  - Retinal degeneration [Recovered/Resolved]
